FAERS Safety Report 7129864-8 (Version None)
Quarter: 2010Q4

REPORT INFORMATION
  Report Type: 
  Country: None (occurrence: None)
  Receive Date: 20101130
  Receipt Date: 20100930
  Transmission Date: 20110411
  Serious: No
  Sender: FDA-Public Use
  Company Number: US-AMGEN-KDL442308

PATIENT

DRUGS (8)
  1. NPLATE [Suspect]
     Indication: IDIOPATHIC THROMBOCYTOPENIC PURPURA
     Dosage: 1 A?G/KG, UNK
     Dates: start: 20100322, end: 20100528
  2. CORTICOSTEROID NOS [Concomitant]
     Dosage: UNK UNK, UNK
     Dates: start: 20100219
  3. MEDROXYPROGESTERONE ACETATE [Concomitant]
     Dosage: 10 MG, QD
  4. PREDNISONE [Concomitant]
     Dosage: UNK UNK, QD
  5. MULTI-VITAMINS [Concomitant]
  6. ESOMEPRAZOLE MAGNESIUM [Concomitant]
     Dosage: 40 MG, QD
     Route: 048
  7. FERROUS SULFATE [Concomitant]
     Dosage: 325 MG, BID
     Route: 048
  8. FOLIC ACID [Concomitant]
     Dosage: 1 MG, QD
     Route: 048

REACTIONS (2)
  - ARTHRALGIA [None]
  - MUSCULOSKELETAL PAIN [None]
